FAERS Safety Report 5318210-8 (Version None)
Quarter: 2007Q2

REPORT INFORMATION
  Report Type: 
  Country: None (occurrence: None)
  Receive Date: 20070507
  Receipt Date: 20070423
  Transmission Date: 20071010
  Serious: Yes (Other)
  Sender: FDA-Public Use
  Company Number: JP-ROCHE-492314

PATIENT
  Age: 2 Year
  Sex: Female
  Weight: 11 kg

DRUGS (5)
  1. TAMIFLU [Suspect]
     Dosage: FORM: DRY SYRUP.
     Route: 048
     Dates: start: 20070401, end: 20070401
  2. ENTERONON-R [Concomitant]
     Route: 048
     Dates: start: 20070401
  3. SCOPOLIA EXTRACT [Concomitant]
     Route: 048
     Dates: start: 20070401
  4. LEFTOSE [Concomitant]
     Dosage: GENERIC REPORTED AS LYSOZYME HYDROCHLORIDE.
     Route: 048
     Dates: start: 20070401
  5. PERIACTIN [Concomitant]
     Route: 048
     Dates: start: 20070401

REACTIONS (2)
  - ABNORMAL BEHAVIOUR [None]
  - MUSCULAR WEAKNESS [None]
